FAERS Safety Report 6738398-1 (Version None)
Quarter: 2010Q2

REPORT INFORMATION
  Report Type: 
  Country: None (occurrence: None)
  Receive Date: 20100520
  Receipt Date: 20100508
  Transmission Date: 20101027
  Serious: Yes (Hospitalization, Other)
  Sender: FDA-Public Use
  Company Number: 011614

PATIENT
  Sex: Male
  Weight: 60 kg

DRUGS (1)
  1. XYZAL [Suspect]
     Dosage: 40 TABLETS= 200 MG ORAL
     Route: 048
     Dates: start: 20100508

REACTIONS (2)
  - DIZZINESS [None]
  - SUICIDE ATTEMPT [None]
